FAERS Safety Report 6450861-X (Version None)
Quarter: 2009Q4

REPORT INFORMATION
  Report Type: 
  Country: None (occurrence: None)
  Receive Date: 20091123
  Receipt Date: 20090219
  Transmission Date: 20100525
  Serious: Yes (Other)
  Sender: FDA-Public Use
  Company Number: US-AMGEN-QUU334736

PATIENT
  Sex: Female

DRUGS (2)
  1. ENBREL [Suspect]
     Indication: RHEUMATOID ARTHRITIS
     Route: 058
     Dates: start: 20090211
  2. SULFASALAZINE [Concomitant]
     Route: 058

REACTIONS (6)
  - ASTHENIA [None]
  - DEPRESSION [None]
  - HYPERAESTHESIA [None]
  - HYPOAESTHESIA [None]
  - MENTAL IMPAIRMENT [None]
  - RASH [None]
